FAERS Safety Report 22108480 (Version 1)
Quarter: 2023Q1

REPORT INFORMATION
  Report Type: Spontaneous
  Country: JP (occurrence: JP)
  Receive Date: 20230317
  Receipt Date: 20230317
  Transmission Date: 20230418
  Serious: Yes (Hospitalization)
  Sender: FDA-Public Use
  Company Number: JP-MYE-2023M1026005AA

PATIENT
  Sex: Female

DRUGS (7)
  1. ERYTHROMYCIN [Suspect]
     Active Substance: ERYTHROMYCIN
     Indication: Infection prophylaxis
     Dosage: 250 MILLIGRAM, QID
     Route: 042
  2. AMPICILLIN [Concomitant]
     Active Substance: AMPICILLIN
     Indication: Infection prophylaxis
     Dosage: 1 MILLIGRAM, QID
     Route: 042
  3. BETAMETHASONE [Concomitant]
     Active Substance: BETAMETHASONE
     Indication: Premature delivery
     Dosage: 12 MILLIGRAM, BETAMETHASONE 12 MG INTRAMUSCULAR INJECTION WAS GIVEN ON THE DAY OF ADMISSION AND THE
     Route: 030
  4. RITODINE [Concomitant]
     Indication: Uterine hypertonus
     Dosage: 33?G/MIN, CONTINUOUS INTRAVENOUS DRIP
     Route: 042
  5. MAGNESIUM SULFATE [Concomitant]
     Active Substance: MAGNESIUM SULFATE
     Indication: Uterine hypertonus
     Dosage: 1G/H,  CONTINUOUS INTRAVENOUS DRIP
     Route: 042
  6. ULINASTATIN [Concomitant]
     Active Substance: ULINASTATIN
     Indication: Vaginal douching
     Dosage: UNK
     Route: 065
  7. HYDROXYPROGESTERONE [Concomitant]
     Active Substance: HYDROXYPROGESTERONE
     Indication: Product used for unknown indication
     Dosage: 125 MILLIGRAM
     Route: 030

REACTIONS (2)
  - Premature baby [Unknown]
  - Foetal exposure during pregnancy [Unknown]
